FAERS Safety Report 9102968 (Version 3)
Quarter: 2013Q3

REPORT INFORMATION
  Report Type: Spontaneous
  Country: US (occurrence: US)
  Receive Date: 20130219
  Receipt Date: 20130809
  Transmission Date: 20140515
  Serious: Yes (Hospitalization, Other)
  Sender: FDA-Public Use
  Company Number: US-PFIZER INC-2010094594

PATIENT
  Age: 63 Year
  Sex: Female
  Weight: 113.38 kg

DRUGS (37)
  1. LASIX [Concomitant]
     Indication: OEDEMA
     Dosage: 40 MG, 2X/DAY
  2. LASIX [Concomitant]
     Indication: BLOOD SODIUM ABNORMAL
  3. NORCO [Concomitant]
     Indication: ARTHRALGIA
     Dosage: 10/325 MG, AS NEEDED
  4. NORCO [Concomitant]
     Indication: ARTHRITIS
  5. LIDODERM [Concomitant]
     Indication: BACK PAIN
     Dosage: UNK (12 HOURS ON PATCH AND 12 HOURS OFF FROM PATCH), 1X/DAY
  6. LISINOPRIL [Concomitant]
     Indication: HYPERTENSION
     Dosage: 10 MG, 1X/DAY
  7. LOTEMAX [Concomitant]
     Indication: DRY EYE
     Dosage: UNK (1-2 DROPS ), 3X/DAY
  8. CICLOSPORIN [Concomitant]
     Indication: DRY EYE
     Dosage: 1 GTT, EVERY 12 HOURS
     Route: 047
  9. FISH OIL [Concomitant]
     Indication: DRY EYE
     Dosage: 1300 MG, 2X/DAY
     Route: 047
  10. PROPYLENE GLYCOL [Concomitant]
     Indication: DRY EYE
     Dosage: UNK(1-2 DROPS), EVERY 2 HOURS
     Route: 047
  11. OMEPRAZOLE [Concomitant]
     Indication: GASTROOESOPHAGEAL REFLUX DISEASE
     Dosage: 20 MG, 2X/DAY
  12. RANITIDINE HYDROCHLORIDE [Concomitant]
     Indication: GASTROOESOPHAGEAL REFLUX DISEASE
     Dosage: 150 MG, AFTER EVERY MEAL
  13. GAS-X [Concomitant]
     Indication: GASTROOESOPHAGEAL REFLUX DISEASE
     Dosage: 125 MG, AS NEEDED (AFTER EVERY MEAL )
  14. SIMVASTATIN [Concomitant]
     Indication: BLOOD CHOLESTEROL INCREASED
     Dosage: 10 MG, 1X/DAY
  15. TRAVATAN [Concomitant]
     Indication: GLAUCOMA
     Dosage: 1 GTT, 1X/DAY
  16. CENTRUM [Concomitant]
     Indication: HYPOVITAMINOSIS
     Dosage: UNK, 1X/DAY
  17. CALCIUM WITH VITAMIN D [Concomitant]
     Indication: HYPOVITAMINOSIS
     Dosage: 600/400 IU, 1X/DAY
  18. VITAMIN D [Concomitant]
     Indication: HYPOVITAMINOSIS
     Dosage: 400 IU, 1X/DAY
  19. CALCIUM CHLORIDE [Concomitant]
     Indication: HYPOVITAMINOSIS
     Dosage: 20 MEQ, EVERY 12 HOURS
  20. VITAMIN C [Concomitant]
     Indication: IMMUNE SYSTEM DISORDER
     Dosage: 1000 IU, 1X/DAY
  21. VITAMIN E [Concomitant]
     Indication: DRY SKIN
     Dosage: 400 IU, 1X/DAY
  22. LYRICA [Suspect]
     Indication: BACK PAIN
     Dosage: 200 MG, 2X/DAY
     Route: 048
     Dates: end: 2012
  23. LYRICA [Suspect]
     Dosage: 200 MG, 3X/DAY
     Route: 048
     Dates: start: 2012
  24. PREDNISONE [Suspect]
     Indication: PAIN
     Dosage: 10 MG, 1X/DAY (IN THE MORNING )
  25. ACTONEL [Concomitant]
     Indication: BONE DISORDER
     Dosage: 150 MG, MONTHLY
  26. AZELASTINE HYDROCHLORIDE [Concomitant]
     Indication: NASAL DECONGESTION THERAPY
     Dosage: 548 UG (TWO PUFFS OF 137 MCG IN EACH NOSTRIL), 1X/DAY
     Route: 045
  27. FLONASE [Concomitant]
     Indication: NASAL DECONGESTION THERAPY
     Dosage: 100 UG (50 UG, ONE PUFF IN EACH NOSTRIL) , 1X/DAY
     Route: 045
  28. CHLORPHENIRAMINE [Concomitant]
     Indication: RHINITIS ALLERGIC
     Dosage: 4 MG, AS NEEDED
  29. CHLORPHENIRAMINE [Concomitant]
     Indication: RHINITIS
  30. CLONAZEPAM [Concomitant]
     Indication: ANXIETY
     Dosage: 0.5 MG, 4X/DAY
  31. CLONAZEPAM [Concomitant]
     Indication: SLEEP DISORDER
  32. RISPERIDONE [Concomitant]
     Indication: BIPOLAR DISORDER
     Dosage: 3 MG, 1X/DAY
  33. RISPERIDONE [Concomitant]
     Indication: SLEEP DISORDER
  34. TRAZODONE [Concomitant]
     Indication: BIPOLAR DISORDER
     Dosage: 100 MG, AS NEEDED
  35. TRAZODONE [Concomitant]
     Indication: SLEEP DISORDER
  36. COLACE [Concomitant]
     Indication: ABNORMAL FAECES
     Dosage: 60 MG, 1X/DAY
  37. FENTANYL [Concomitant]
     Indication: PAIN
     Dosage: 24 UG, EVERY THREE DAYS

REACTIONS (8)
  - Thrombosis [Recovering/Resolving]
  - Staphylococcal infection [Unknown]
  - Drug dependence [Unknown]
  - Fatigue [Not Recovered/Not Resolved]
  - Pain [Unknown]
  - Pleuritic pain [Not Recovered/Not Resolved]
  - Vision blurred [Unknown]
  - Dizziness [Unknown]
